FAERS Safety Report 7651474-4 (Version None)
Quarter: 2011Q3

REPORT INFORMATION
  Report Type: 
  Country: None (occurrence: None)
  Receive Date: 20110802
  Receipt Date: 20110727
  Transmission Date: 20111222
  Serious: Yes (Death, Hospitalization, Other)
  Sender: FDA-Public Use
  Company Number: PHHY2011JP68784

PATIENT
  Age: 87 Year
  Sex: Female
  Weight: 71 kg

DRUGS (3)
  1. VOLTAREN [Suspect]
     Dosage: 50 MG, UNK
     Route: 054
     Dates: start: 20000501
  2. VOLTAREN [Suspect]
     Indication: RHEUMATOID ARTHRITIS
     Dosage: 75 MG, UNK
     Route: 048
     Dates: start: 20000501
  3. PREDNISOLONE [Concomitant]
     Indication: RHEUMATOID ARTHRITIS
     Dosage: UNK UKN, UNK
     Route: 048
     Dates: start: 19980101

REACTIONS (10)
  - SEPTIC SHOCK [None]
  - MULTI-ORGAN FAILURE [None]
  - HAEMATOCRIT DECREASED [None]
  - AMYLOIDOSIS [None]
  - C-REACTIVE PROTEIN INCREASED [None]
  - DISSEMINATED INTRAVASCULAR COAGULATION [None]
  - LARGE INTESTINE PERFORATION [None]
  - BLOOD PRESSURE DIASTOLIC DECREASED [None]
  - CYTOMEGALOVIRUS INFECTION [None]
  - HAEMOGLOBIN DECREASED [None]
